FAERS Safety Report 11776609 (Version 2)
Quarter: 2015Q4

REPORT INFORMATION
  Report Type: Report from Study
  Country: US (occurrence: US)
  Receive Date: 20151125
  Receipt Date: 20151202
  Transmission Date: 20160304
  Serious: Yes (Hospitalization, Other)
  Sender: FDA-Public Use
  Company Number: US-TEVA-610882USA

PATIENT
  Age: 43 Year
  Sex: Female
  Weight: 64.47 kg

DRUGS (17)
  1. PEPCID [Concomitant]
     Active Substance: FAMOTIDINE
     Indication: PROPHYLAXIS OF NAUSEA AND VOMITING
     Dosage: 20 MG AS REQUIRED
     Route: 048
     Dates: start: 20150429
  2. ZOFRAN [Concomitant]
     Active Substance: ONDANSETRON HYDROCHLORIDE
     Indication: PROPHYLAXIS OF NAUSEA AND VOMITING
     Dosage: 20 MG, AS REQUIRED
     Route: 048
     Dates: start: 20150429
  3. CARBOPLATIN. [Suspect]
     Active Substance: CARBOPLATIN
     Indication: TRIPLE NEGATIVE BREAST CANCER
     Route: 042
     Dates: start: 20150429, end: 20150702
  4. LOVENOX [Concomitant]
     Active Substance: ENOXAPARIN SODIUM
     Dosage: 140 MILLIGRAM DAILY;
     Dates: start: 20150803
  5. CYCLOPHOSPHAMIDE (OPEN LABEL) [Suspect]
     Active Substance: CYCLOPHOSPHAMIDE
     Indication: TRIPLE NEGATIVE BREAST CANCER
     Dosage: 600 MG/M2
     Route: 042
     Dates: start: 20150723
  6. LOVENOX [Concomitant]
     Active Substance: ENOXAPARIN SODIUM
     Dosage: 160 MILLIGRAM DAILY;
     Dates: start: 20150725, end: 20150803
  7. NEULASTA [Concomitant]
     Active Substance: PEGFILGRASTIM
     Indication: PROPHYLAXIS
     Dosage: 6 MG, AS REQUIRED
     Route: 058
     Dates: start: 20150724
  8. EMEND [Concomitant]
     Active Substance: APREPITANT
     Indication: PROPHYLAXIS OF NAUSEA AND VOMITING
     Dosage: 125 MG, AS REQUIRED
     Route: 048
     Dates: start: 20150429
  9. PACLITAXEL. [Suspect]
     Active Substance: PACLITAXEL
     Indication: TRIPLE NEGATIVE BREAST CANCER
     Dosage: 80 MG/M2
     Route: 042
     Dates: start: 20150429, end: 20150716
  10. DEXAMETHASONE. [Concomitant]
     Active Substance: DEXAMETHASONE
     Indication: PROPHYLAXIS OF NAUSEA AND VOMITING
     Dosage: 20 MG AS REQUIRED
     Route: 041
     Dates: start: 20150429
  11. PRILOSEC [Concomitant]
     Active Substance: OMEPRAZOLE MAGNESIUM
     Indication: DYSPEPSIA
     Dosage: 2 TABLETS
     Route: 048
     Dates: start: 20150504
  12. DOXORUBICIN [Suspect]
     Active Substance: DOXORUBICIN
     Indication: TRIPLE NEGATIVE BREAST CANCER
     Dosage: 60 MG/M2
     Route: 042
     Dates: start: 20150723
  13. LOVENOX [Concomitant]
     Active Substance: ENOXAPARIN SODIUM
     Indication: PULMONARY EMBOLISM
     Dosage: 120 MILLIGRAM DAILY;
     Dates: start: 20150625, end: 20150724
  14. KEPPRA [Concomitant]
     Active Substance: LEVETIRACETAM
     Indication: PARTIAL SEIZURES
     Dosage: 1000 MILLIGRAM DAILY;
     Route: 048
     Dates: start: 20150801
  15. ABT-888 (VELIPARIS) (BLINDED) [Suspect]
     Active Substance: VELIPARIB
     Indication: TRIPLE NEGATIVE BREAST CANCER
     Route: 048
     Dates: start: 20150429, end: 20150722
  16. BENADRYL [Concomitant]
     Active Substance: DIPHENHYDRAMINE HYDROCHLORIDE
     Indication: PROPHYLAXIS OF NAUSEA AND VOMITING
     Dosage: 50 MG, AS REQUIRED
     Route: 048
     Dates: start: 20150429
  17. LOVENOX [Concomitant]
     Active Substance: ENOXAPARIN SODIUM
     Dosage: 160 MILLIGRAM DAILY;
     Dates: start: 20150731, end: 20150803

REACTIONS (4)
  - Cerebrovascular accident [Recovered/Resolved]
  - Neutropenia [Recovered/Resolved]
  - Partial seizures [Recovered/Resolved]
  - Febrile neutropenia [Recovered/Resolved]

NARRATIVE: CASE EVENT DATE: 20150730
